FAERS Safety Report 7977053-7 (Version None)
Quarter: 2011Q4

REPORT INFORMATION
  Report Type: 
  Country: None (occurrence: None)
  Receive Date: 20111213
  Receipt Date: 20111109
  Transmission Date: 20120403
  Serious: No
  Sender: FDA-Public Use
  Company Number: US-AMGEN-USASP2011058617

PATIENT
  Age: 64 Year
  Sex: Male

DRUGS (1)
  1. ENBREL [Suspect]
     Indication: PSORIASIS
     Dates: end: 20110101

REACTIONS (4)
  - SKIN OEDEMA [None]
  - RASH ERYTHEMATOUS [None]
  - SKIN FISSURES [None]
  - HYPERSENSITIVITY [None]
